FAERS Safety Report 4492897-4 (Version None)
Quarter: 2004Q4

REPORT INFORMATION
  Report Type: 
  Country: None (occurrence: None)
  Receive Date: 20041104
  Receipt Date: 20041025
  Transmission Date: 20050328
  Serious: Yes (Death)
  Sender: FDA-Public Use
  Company Number: US-MERCK-0410USA04039

PATIENT
  Age: 39 Year

DRUGS (2)
  1. COGENTIN [Suspect]
     Route: 048
  2. HALOPERIDOL [Suspect]
     Route: 048

REACTIONS (2)
  - ADVERSE EVENT [None]
  - DEATH [None]
